FAERS Safety Report 8422989-6 (Version None)
Quarter: 2012Q2

REPORT INFORMATION
  Report Type: 
  Country: None (occurrence: None)
  Receive Date: 20120608
  Receipt Date: 20120531
  Transmission Date: 20120825
  Serious: Yes (Other)
  Sender: FDA-Public Use
  Company Number: US-JNJFOC-20120600716

PATIENT
  Sex: Male
  Weight: 64.86 kg

DRUGS (1)
  1. XARELTO [Suspect]
     Indication: PRODUCT USED FOR UNKNOWN INDICATION
     Route: 048
     Dates: start: 20120315, end: 20120401

REACTIONS (5)
  - SKIN DISCOLOURATION [None]
  - HAEMATOCHEZIA [None]
  - ABNORMAL BEHAVIOUR [None]
  - EPISTAXIS [None]
  - ASTHENIA [None]
